FAERS Safety Report 18548859 (Version 1)
Quarter: 2020Q4

REPORT INFORMATION
  Report Type: Report from Study
  Country: US (occurrence: US)
  Receive Date: 20201126
  Receipt Date: 20201126
  Transmission Date: 20210114
  Serious: Yes (Other)
  Sender: FDA-Public Use
  Company Number: US-AUROBINDO-AUR-APL-2020-057907

PATIENT
  Age: 46 Year
  Sex: Female

DRUGS (3)
  1. MEXILETINE [Suspect]
     Active Substance: MEXILETINE
     Indication: BREAST CANCER
     Dosage: UNK
     Route: 065
  2. PREGABALINE [Suspect]
     Active Substance: PREGABALIN
     Indication: BREAST CANCER
     Dosage: UNK
     Route: 065
  3. GABAPENTIN. [Suspect]
     Active Substance: GABAPENTIN
     Indication: BREAST CANCER
     Dosage: UNK
     Route: 065

REACTIONS (1)
  - Treatment failure [Unknown]
